FAERS Safety Report 4634104-5 (Version None)
Quarter: 2005Q2

REPORT INFORMATION
  Report Type: 
  Country: None (occurrence: None)
  Receive Date: 20050413
  Receipt Date: 20050412
  Transmission Date: 20051028
  Serious: Yes (Other)
  Sender: FDA-Public Use
  Company Number: US-GLAXOSMITHKLINE-A0553814A

PATIENT
  Age: 50 Year
  Sex: Female

DRUGS (2)
  1. AUGMENTIN [Suspect]
     Indication: SINUSITIS
     Dosage: 1000MG FOUR TIMES PER DAY
     Route: 048
     Dates: start: 20050201
  2. BIRTH CONTROL [Concomitant]

REACTIONS (3)
  - HEPATIC FAILURE [None]
  - HEPATIC TRAUMA [None]
  - JAUNDICE [None]
